FAERS Safety Report 5570234-1 (Version None)
Quarter: 2007Q4

REPORT INFORMATION
  Report Type: 
  Country: None (occurrence: None)
  Receive Date: 20071219
  Receipt Date: 20071210
  Transmission Date: 20080405
  Serious: Yes (Other)
  Sender: FDA-Public Use
  Company Number: 2007337525

PATIENT
  Age: 61 Year
  Weight: 68.0396 kg

DRUGS (2)
  1. LISTERINE WHITENING QUICK DISSOLVING STRIPS (NO ACTIVE INGREDENT) [Suspect]
     Indication: DENTAL CARE
     Dosage: 2 STRIPES TWICE,ORAL
     Route: 048
     Dates: start: 20071206, end: 20071207
  2. DRUG, UNSPECIFIED (DRUG, UNSPECIFIED) [Concomitant]

REACTIONS (3)
  - GLOSSODYNIA [None]
  - TONGUE DISCOLOURATION [None]
  - TONGUE ULCERATION [None]
